FAERS Safety Report 8162119-1 (Version None)
Quarter: 2012Q1

REPORT INFORMATION
  Report Type: 
  Country: None (occurrence: None)
  Receive Date: 20120224
  Receipt Date: 20111024
  Transmission Date: 20120608
  Serious: No
  Sender: FDA-Public Use
  Company Number: US-BRISTOL-MYERS SQUIBB COMPANY-16188641

PATIENT
  Age: 48 Year
  Sex: Female
  Weight: 78 kg

DRUGS (4)
  1. HUMALOG [Concomitant]
  2. METFORMIN HCL [Suspect]
  3. LANTUS [Concomitant]
  4. VICTOZA [Concomitant]

REACTIONS (1)
  - INFLUENZA LIKE ILLNESS [None]
